FAERS Safety Report 4874946-4 (Version None)
Quarter: 2006Q1

REPORT INFORMATION
  Report Type: 
  Country: None (occurrence: None)
  Receive Date: 20060104
  Receipt Date: 20051222
  Transmission Date: 20060701
  Serious: Yes (Hospitalization, Other)
  Sender: FDA-Public Use
  Company Number: 2005142557

PATIENT
  Age: 62 Year
  Sex: Female
  Weight: 4.536 kg

DRUGS (8)
  1. LIPITOR [Suspect]
     Indication: BLOOD CHOLESTEROL INCREASED
     Dosage: 20 MG (20 MG, 1 IN 1 D), ORAL
     Route: 048
     Dates: start: 20050101, end: 20051001
  2. ZITHROMAX [Suspect]
     Indication: DYSPNOEA
     Dosage: 1000 MG, ORAL
     Route: 048
     Dates: start: 20051011
  3. ALL OTHER THERAPEUTIC PRODUCTS (ALL OTHER THERAPEUTIC PRODUCTS) [Suspect]
     Indication: DYSPNOEA
     Dosage: 400 MG
     Dates: start: 20051011
  4. EFFEXOR (VENLAFAXINE HYDROHCLORIDE) [Concomitant]
  5. METHADONE HCL [Concomitant]
  6. KLONOPIN [Concomitant]
  7. ATARAX [Concomitant]
  8. STOOL SOFTENER (DOCUSATE SODIUM) [Concomitant]

REACTIONS (7)
  - DYSPNOEA [None]
  - FEAR [None]
  - FEELING ABNORMAL [None]
  - LOSS OF CONSCIOUSNESS [None]
  - OVERDOSE [None]
  - OXYGEN SATURATION DECREASED [None]
  - TREATMENT NONCOMPLIANCE [None]
